FAERS Safety Report 4284617-3 (Version None)
Quarter: 2004Q1

REPORT INFORMATION
  Report Type: 
  Country: None (occurrence: None)
  Receive Date: 20040130
  Receipt Date: 20040113
  Transmission Date: 20041129
  Serious: Yes (Hospitalization)
  Sender: FDA-Public Use
  Company Number: USA040156495

PATIENT
  Age: 79 Year
  Sex: Female

DRUGS (2)
  1. FORTEO [Suspect]
     Dates: start: 20030801, end: 20031201
  2. BLOOD PRESSURE MEDICATIONS [Concomitant]

REACTIONS (4)
  - CONDITION AGGRAVATED [None]
  - HYPOAESTHESIA [None]
  - NERVE COMPRESSION [None]
  - PARAESTHESIA [None]
